FAERS Safety Report 25817866 (Version 3)
Quarter: 2025Q4

REPORT INFORMATION
  Report Type: Spontaneous
  Country: US (occurrence: US)
  Receive Date: 20250918
  Receipt Date: 20251009
  Transmission Date: 20260118
  Serious: No
  Sender: BAYER HEALTHCARE PHARMACEUTICALS INC.
  Company Number: US-BAYER-2025A123673

PATIENT
  Age: 60 Year
  Sex: Female
  Weight: 52.16 kg

DRUGS (1)
  1. ESTRADIOL [Suspect]
     Active Substance: ESTRADIOL
     Dosage: UNK
     Route: 062

REACTIONS (3)
  - Application site pruritus [Recovering/Resolving]
  - Device adhesion issue [None]
  - Application site erythema [Recovering/Resolving]

NARRATIVE: CASE EVENT DATE: 20250701
